FAERS Safety Report 5500098-3 (Version None)
Quarter: 2007Q4

REPORT INFORMATION
  Report Type: 
  Country: None (occurrence: None)
  Receive Date: 20071024
  Receipt Date: 20071009
  Transmission Date: 20080405
  Serious: Yes (Other)
  Sender: FDA-Public Use
  Company Number: 2007S1010156

PATIENT
  Sex: Female

DRUGS (4)
  1. MIRTAZAPINE [Suspect]
     Indication: DEPRESSION
     Dosage: 15 MG; ORAL
     Route: 048
     Dates: start: 20070706, end: 20070711
  2. LEVOTHYROXINE SODIUM [Concomitant]
  3. VENLAFAXINE HCL [Concomitant]
  4. ZOPICLONE [Concomitant]

REACTIONS (5)
  - HEADACHE [None]
  - NIGHTMARE [None]
  - ORGASM ABNORMAL [None]
  - PSYCHOMOTOR HYPERACTIVITY [None]
  - TENSION [None]
